FAERS Safety Report 8380517-8 (Version None)
Quarter: 2012Q2

REPORT INFORMATION
  Report Type: 
  Country: None (occurrence: None)
  Receive Date: 20120523
  Receipt Date: 20120510
  Transmission Date: 20120825
  Serious: Yes (Hospitalization)
  Sender: FDA-Public Use
  Company Number: CA-ASTRAZENECA-2012SE30495

PATIENT
  Sex: Female

DRUGS (2)
  1. BRILINTA [Suspect]
     Route: 048
     Dates: start: 20120324, end: 20120401
  2. PRESSAT [Concomitant]
     Route: 048

REACTIONS (4)
  - CHEST DISCOMFORT [None]
  - INFARCTION [None]
  - BACK PAIN [None]
  - PAIN IN EXTREMITY [None]
